FAERS Safety Report 4996948-X (Version None)
Quarter: 2006Q2

REPORT INFORMATION
  Report Type: 
  Country: None (occurrence: None)
  Receive Date: 20060509
  Receipt Date: 20060302
  Transmission Date: 20061013
  Serious: Yes (Life-Threatening)
  Sender: FDA-Public Use
  Company Number: BE-ROCHE-438455

PATIENT
  Age: 52 Year
  Sex: Male
  Weight: 74 kg

DRUGS (3)
  1. PEG-INTERFERON A-2A (RO 25-8310) [Suspect]
     Dosage: FORM = PREFILLED SYRINGE
     Route: 058
     Dates: start: 20041214, end: 20051115
  2. RIBAVIRIN [Suspect]
     Route: 048
     Dates: end: 20051115
  3. AMANTADINE HCL [Suspect]
     Route: 048
     Dates: end: 20051115

REACTIONS (3)
  - BLINDNESS TRANSIENT [None]
  - CEREBROVASCULAR ACCIDENT [None]
  - ISCHAEMIC STROKE [None]
